FAERS Safety Report 8784135 (Version 1)
Quarter: 2012Q4

REPORT INFORMATION
  Report Type: Report from Study
  Country: US (occurrence: US)
  Receive Date: 20120913
  Receipt Date: 20120913
  Transmission Date: 20130627
  Serious: No
  Sender: FDA-Public Use
  Company Number: US-VERTEX PHARMACEUTICAL INC.-AE-2012-009456

PATIENT
  Sex: Male
  Weight: 106.82 kg

DRUGS (10)
  1. INCIVEK [Suspect]
     Indication: HEPATITIS C
     Route: 048
  2. RIBAPAK [Concomitant]
     Indication: HEPATITIS C
  3. PEGASYS [Concomitant]
     Indication: HEPATITIS C
  4. HUMALOG [Concomitant]
  5. LANTUS [Concomitant]
  6. WELLBUTRIN [Concomitant]
  7. PREVACID [Concomitant]
  8. VITAMIN D [Concomitant]
  9. BENICAR [Concomitant]
  10. MULTIVITAMIN [Concomitant]

REACTIONS (2)
  - Insomnia [Unknown]
  - Burning sensation [Unknown]
